FAERS Safety Report 14711769 (Version 1)
Quarter: 2018Q2

REPORT INFORMATION
  Report Type: Spontaneous
  Country: US (occurrence: US)
  Receive Date: 20180403
  Receipt Date: 20180403
  Transmission Date: 20180711
  Serious: No
  Sender: FDA-Public Use
  Company Number: US-BAYER-2018-063377

PATIENT
  Sex: Female
  Weight: 57 kg

DRUGS (3)
  1. MIRALAX [Suspect]
     Active Substance: POLYETHYLENE GLYCOL 3350
     Indication: GASTROINTESTINAL DISORDER
     Dosage: 1 DF (CAPFUL), QD
     Route: 048
     Dates: start: 20180325
  2. CALCIUM [CALCIUM] [Concomitant]
     Active Substance: CALCIUM
  3. ONE-A-DAY NOS [Concomitant]
     Active Substance: MINERALS\VITAMINS
     Dosage: UNK

REACTIONS (1)
  - Product use issue [Unknown]
